FAERS Safety Report 25614308 (Version 5)
Quarter: 2025Q4

REPORT INFORMATION
  Report Type: Report from Study
  Country: US (occurrence: US)
  Receive Date: 20250728
  Receipt Date: 20251216
  Transmission Date: 20260117
  Serious: No
  Sender: ABBVIE
  Company Number: US-ABBVIE-6388761

PATIENT
  Age: 85 Year
  Sex: Male
  Weight: 89 kg

DRUGS (2)
  1. SKYRIZI [Suspect]
     Active Substance: RISANKIZUMAB-RZAA
     Indication: Crohn^s disease
     Dosage: FORM STRENGTH: 360 MILLIMOL
     Route: 058
     Dates: start: 20240909, end: 2025
  2. SKYRIZI [Suspect]
     Active Substance: RISANKIZUMAB-RZAA
     Dosage: FORM STRENGTH 360 MILLIMOL
     Route: 058

REACTIONS (10)
  - Renal disorder [Not Recovered/Not Resolved]
  - Injection site pain [Recovered/Resolved]
  - Haemoglobin decreased [Not Recovered/Not Resolved]
  - Frequent bowel movements [Recovering/Resolving]
  - Blood glucose increased [Not Recovered/Not Resolved]
  - Fatigue [Recovering/Resolving]
  - Drug ineffective [Unknown]
  - Asthenia [Recovering/Resolving]
  - Gastrointestinal pain [Not Recovered/Not Resolved]
  - Rash [Recovering/Resolving]

NARRATIVE: CASE EVENT DATE: 20250601
